FAERS Safety Report 7758569-5 (Version None)
Quarter: 2011Q3

REPORT INFORMATION
  Report Type: 
  Country: None (occurrence: None)
  Receive Date: 20110919
  Receipt Date: 20110906
  Transmission Date: 20111222
  Serious: Yes (Hospitalization)
  Sender: FDA-Public Use
  Company Number: US-ELI_LILLY_AND_COMPANY-US201107003517

PATIENT
  Sex: Male
  Weight: 115 kg

DRUGS (8)
  1. LITHIUM CARBONATE [Concomitant]
     Dosage: 900 MG, UNK
     Dates: end: 20110801
  2. ZYPREXA RELPREVV [Suspect]
     Indication: SCHIZOPHRENIA, PARANOID TYPE
     Dosage: 300 MG, EVERY 2 WEEKS
     Route: 030
  3. SEROQUEL [Concomitant]
     Dosage: 300 MG, BID
  4. COCAINE [Concomitant]
  5. DEPAKOTE [Concomitant]
     Dosage: 500 MG, 2 AT BEDTIME
  6. MARIJUANA [Concomitant]
  7. RITALIN [Concomitant]
     Dosage: 10 MG, EACH MORNING
  8. LUVOX [Concomitant]
     Dosage: 200 MG, QD
     Route: 048

REACTIONS (3)
  - PSYCHOTIC DISORDER [None]
  - DRUG DOSE OMISSION [None]
  - OBSESSIVE-COMPULSIVE DISORDER [None]
